FAERS Safety Report 8173650-7 (Version None)
Quarter: 2012Q1

REPORT INFORMATION
  Report Type: 
  Country: None (occurrence: None)
  Receive Date: 20120229
  Receipt Date: 20120221
  Transmission Date: 20120608
  Serious: Yes (Hospitalization)
  Sender: FDA-Public Use
  Company Number: US-BAYER-2011-041037

PATIENT
  Age: 41 Year
  Sex: Female
  Weight: 94.331 kg

DRUGS (7)
  1. HYZAAR [Concomitant]
     Indication: HYPERTENSION
     Dosage: UNK
     Dates: start: 20050919, end: 20101128
  2. IBUPROFEN [Concomitant]
     Indication: ARTHRALGIA
     Dosage: UNK
     Dates: start: 20060101, end: 20100101
  3. LOVASTATIN [Concomitant]
  4. NEXIUM [Concomitant]
     Indication: GASTROOESOPHAGEAL REFLUX DISEASE
     Dosage: UNK
     Dates: start: 20060101, end: 20070101
  5. YASMIN [Suspect]
     Indication: MENSTRUAL CYCLE MANAGEMENT
     Dosage: UNK
     Dates: start: 20040912, end: 20080711
  6. METFORMIN HCL [Concomitant]
     Indication: DIABETES MELLITUS
     Dosage: UNK
     Dates: start: 20030430, end: 20101102
  7. ACETAMINOPHEN [Concomitant]
     Dosage: UNK
     Dates: start: 20070325

REACTIONS (14)
  - GENERAL PHYSICAL HEALTH DETERIORATION [None]
  - DEEP VEIN THROMBOSIS [None]
  - HYPOAESTHESIA [None]
  - ANXIETY [None]
  - PAIN IN EXTREMITY [None]
  - OEDEMA PERIPHERAL [None]
  - DYSPNOEA [None]
  - MUSCULOSKELETAL PAIN [None]
  - FEAR OF DISEASE [None]
  - ACUTE CORONARY SYNDROME [None]
  - MYOCARDIAL INFARCTION [None]
  - CHEST PAIN [None]
  - EMOTIONAL DISTRESS [None]
  - PAIN [None]
